FAERS Safety Report 13107452 (Version 3)
Quarter: 2017Q1

REPORT INFORMATION
  Report Type: Report from Study
  Country: JP (occurrence: JP)
  Receive Date: 20170112
  Receipt Date: 20170310
  Transmission Date: 20170428
  Serious: Yes (Death)
  Sender: FDA-Public Use
  Company Number: JP-INCYTE CORPORATION-2017IN000129

PATIENT
  Age: 78 Year
  Sex: Male

DRUGS (1)
  1. JAKAVI [Suspect]
     Active Substance: RUXOLITINIB
     Indication: MYELOFIBROSIS
     Dosage: UNKNOWN
     Route: 048
     Dates: start: 20161207, end: 201612

REACTIONS (1)
  - Myelofibrosis [Fatal]

NARRATIVE: CASE EVENT DATE: 201612
